FAERS Safety Report 7718695-3 (Version None)
Quarter: 2011Q3

REPORT INFORMATION
  Report Type: 
  Country: None (occurrence: None)
  Receive Date: 20110830
  Receipt Date: 20110818
  Transmission Date: 20111222
  Serious: Yes (Other)
  Sender: FDA-Public Use
  Company Number: US-ELI_LILLY_AND_COMPANY-US201108006873

PATIENT
  Age: 31 Year
  Sex: Male

DRUGS (1)
  1. CYMBALTA [Suspect]
     Indication: NEURALGIA
     Dosage: 30 MG, QD
     Route: 065
     Dates: start: 20110728, end: 20110809

REACTIONS (4)
  - PRESYNCOPE [None]
  - ASTHENIA [None]
  - DYSPNOEA [None]
  - OFF LABEL USE [None]
